FAERS Safety Report 7618066-4 (Version None)
Quarter: 2011Q3

REPORT INFORMATION
  Report Type: 
  Country: None (occurrence: None)
  Receive Date: 20110718
  Receipt Date: 20110714
  Transmission Date: 20111222
  Serious: Yes (Hospitalization)
  Sender: FDA-Public Use
  Company Number: AU-PFIZER INC-2011160098

PATIENT
  Age: 37 Year
  Sex: Male

DRUGS (2)
  1. INVEGA SUSTENNA [Suspect]
     Indication: SCHIZOPHRENIA
     Dosage: 100 MG, MONTHLY
     Route: 030
     Dates: start: 20110308, end: 20110608
  2. VARENICLINE TARTRATE [Suspect]
     Indication: TOBACCO USER

REACTIONS (1)
  - MENTAL STATUS CHANGES [None]
